FAERS Safety Report 5876540-5 (Version None)
Quarter: 2008Q3

REPORT INFORMATION
  Report Type: 
  Country: None (occurrence: None)
  Receive Date: 20080910
  Receipt Date: 20080902
  Transmission Date: 20090109
  Serious: Yes (Hospitalization, Other)
  Sender: FDA-Public Use
  Company Number: BR-ASTRAZENECA-2008UW18138

PATIENT
  Age: 48 Year
  Sex: Female
  Weight: 58 kg

DRUGS (6)
  1. ATENOLOL [Suspect]
     Indication: HYPERTENSION
     Route: 048
     Dates: start: 20080902
  2. ATENOLOL [Suspect]
     Dosage: GENERIC FORMULA
     Route: 048
     Dates: start: 20080701
  3. ATENOLOL [Suspect]
     Route: 048
     Dates: start: 20040101
  4. ATACAND HCT [Suspect]
     Route: 048
     Dates: start: 20080101
  5. SOMALIUM [Concomitant]
  6. CORGARD [Concomitant]
     Dates: start: 19830101

REACTIONS (5)
  - AMENORRHOEA [None]
  - ANXIETY [None]
  - CARDIAC VENTRICULAR DISORDER [None]
  - DRUG INEFFECTIVE [None]
  - HYPERTENSION [None]
